FAERS Safety Report 5237736-9 (Version None)
Quarter: 2007Q1

REPORT INFORMATION
  Report Type: 
  Country: None (occurrence: None)
  Receive Date: 20070214
  Receipt Date: 20070208
  Transmission Date: 20070707
  Serious: Yes (Life-Threatening, Hospitalization)
  Sender: FDA-Public Use
  Company Number: US-BRISTOL-MYERS SQUIBB COMPANY-13641287

PATIENT
  Age: 63 Year
  Sex: Female

DRUGS (8)
  1. TEQUIN [Suspect]
     Indication: SINUSITIS
     Dates: start: 20041221, end: 20041229
  2. TEQUIN [Suspect]
     Indication: BRONCHITIS
     Dates: start: 20041221, end: 20041229
  3. AVAPRO [Concomitant]
     Route: 048
  4. SYNTHROID [Concomitant]
     Route: 048
  5. PREMARIN [Concomitant]
     Route: 048
  6. PEPCID [Concomitant]
  7. ZYRTEC [Concomitant]
     Route: 048
  8. MAXZIDE [Concomitant]
     Route: 048

REACTIONS (4)
  - DIABETES MELLITUS [None]
  - HYPERGLYCAEMIA [None]
  - KETOACIDOSIS [None]
  - RENAL FAILURE ACUTE [None]
